FAERS Safety Report 11223183 (Version 1)
Quarter: 2015Q2

REPORT INFORMATION
  Report Type: Spontaneous
  Country: JP (occurrence: JP)
  Receive Date: 20150626
  Receipt Date: 20150626
  Transmission Date: 20150821
  Serious: Yes (Other)
  Sender: FDA-Public Use
  Company Number: JP-BRISTOL-MYERS SQUIBB COMPANY-BMS-2015-040564

PATIENT
  Age: 74 Year
  Sex: Male

DRUGS (1)
  1. KENACORT [Suspect]
     Active Substance: TRIAMCINOLONE
     Indication: SCAR
     Dosage: UNK, QMO
     Route: 030

REACTIONS (1)
  - Chorioretinopathy [Unknown]
